FAERS Safety Report 25132110 (Version 1)
Quarter: 2025Q1

REPORT INFORMATION
  Report Type: Spontaneous
  Country: US (occurrence: None)
  Receive Date: 20250328
  Receipt Date: 20250328
  Transmission Date: 20250409
  Serious: No
  Sender: AXSOME THERAPEUTICS, INC.
  Company Number: US-Axsome Therapeutics, Inc.-AXS202404-000513

PATIENT
  Age: 46 Year
  Sex: Female

DRUGS (2)
  1. SUNOSI [Suspect]
     Active Substance: SOLRIAMFETOL
     Indication: Narcolepsy
     Route: 048
     Dates: start: 20231230, end: 20240425
  2. SUNOSI [Suspect]
     Active Substance: SOLRIAMFETOL
     Route: 048
     Dates: start: 2024

REACTIONS (5)
  - Gastrooesophageal reflux disease [Unknown]
  - Drug intolerance [Unknown]
  - Hypersensitivity [Unknown]
  - Product use issue [Recovered/Resolved]
  - Product dose omission issue [Unknown]

NARRATIVE: CASE EVENT DATE: 20230101
